FAERS Safety Report 13709956 (Version 1)
Quarter: 2017Q2

REPORT INFORMATION
  Report Type: Spontaneous
  Country: US (occurrence: US)
  Receive Date: 20170630
  Receipt Date: 20170630
  Transmission Date: 20170830
  Serious: Yes (Life-Threatening, Hospitalization)
  Sender: FDA-Public Use
  Company Number: None

PATIENT
  Age: 89 Year
  Sex: Male
  Weight: 91.63 kg

DRUGS (2)
  1. AMIODARONE [Suspect]
     Active Substance: AMIODARONE
     Indication: MITRAL VALVE INCOMPETENCE
     Dates: start: 20080326, end: 20170421
  2. AMIODARONE [Suspect]
     Active Substance: AMIODARONE
     Indication: ATRIAL FIBRILLATION
     Dates: start: 20080326, end: 20170421

REACTIONS (2)
  - Pleural effusion [None]
  - Cardiac failure congestive [None]

NARRATIVE: CASE EVENT DATE: 20170421
